FAERS Safety Report 25728148 (Version 1)
Quarter: 2025Q3

REPORT INFORMATION
  Report Type: Spontaneous
  Country: US (occurrence: None)
  Receive Date: 20250826
  Receipt Date: 20250826
  Transmission Date: 20251020
  Serious: Yes (Disabling)
  Sender: FDA-CTU
  Company Number: None

PATIENT
  Age: 64 Year
  Sex: Male
  Weight: 95.85 kg

DRUGS (8)
  1. REPATHA [Suspect]
     Active Substance: EVOLOCUMAB
     Indication: Blood cholesterol
     Dosage: OTHER FREQUENCY : 1 INJECT EVERY 2W;?OTHER ROUTE : INJECTION (NEAR NAVEL);?
     Route: 050
     Dates: start: 20250602, end: 20250811
  2. EZETIMIBE [Suspect]
     Active Substance: EZETIMIBE
  3. Restasis (cyclosporine) 0.05% (60 Count) [Concomitant]
  4. Minoxidil Foam 5% Topical (Rogaine) [Concomitant]
  5. Naproxen Sodium 220mg ^Glucosamine HCI 750mg with Chondroitin 600mg^ [Concomitant]
  6. Multivitamin (Equate Men 50+) [Concomitant]
  7. Saw Palmetto Extract 160 mg / Pumpkin Seed Oil 1000 mg [Concomitant]
  8. Vitamin D3 2,000 IU [Concomitant]

REACTIONS (7)
  - Peripheral coldness [None]
  - Dizziness [None]
  - Neuropathy peripheral [None]
  - Muscular weakness [None]
  - Blood cholesterol decreased [None]
  - Low density lipoprotein decreased [None]
  - Product label issue [None]

NARRATIVE: CASE EVENT DATE: 20250708
